FAERS Safety Report 7542678-X (Version None)
Quarter: 2011Q2

REPORT INFORMATION
  Report Type: 
  Country: None (occurrence: None)
  Receive Date: 20110613
  Receipt Date: 20110603
  Transmission Date: 20111010
  Serious: Yes (Other)
  Sender: FDA-Public Use
  Company Number: JP-PFIZER INC-2011117298

PATIENT
  Age: 72 Year
  Sex: Male

DRUGS (10)
  1. CARVEDILOL [Concomitant]
     Dosage: UNK
     Route: 048
  2. ALINAMIN F [Concomitant]
     Dosage: UNK
     Route: 048
  3. RABEPRAZOLE SODIUM [Concomitant]
     Dosage: UNK
     Route: 048
  4. LIPITOR [Suspect]
     Dosage: 10 MG DAILY
     Route: 048
     Dates: start: 20100401, end: 20110512
  5. ACTOS [Concomitant]
     Dosage: UNK
     Route: 048
  6. MAGMITT [Concomitant]
     Dosage: UNK
     Route: 048
  7. ASPIRIN [Concomitant]
     Dosage: UNK
     Route: 048
  8. CIMETIDINE HCL [Concomitant]
     Dosage: UNK
     Route: 048
  9. PLAVIX [Concomitant]
     Dosage: UNK
     Route: 048
  10. DIOVAN [Concomitant]
     Dosage: UNK
     Route: 048

REACTIONS (1)
  - MYOCARDIAL INFARCTION [None]
